FAERS Safety Report 5054425-4 (Version None)
Quarter: 2006Q3

REPORT INFORMATION
  Report Type: 
  Country: None (occurrence: None)
  Receive Date: 20060713
  Receipt Date: 20060628
  Transmission Date: 20061208
  Serious: Yes (Hospitalization)
  Sender: FDA-Public Use
  Company Number: 2006PV016550

PATIENT
  Age: 49 Year
  Sex: Female

DRUGS (4)
  1. BYETTA [Suspect]
     Indication: DIABETES MELLITUS NON-INSULIN-DEPENDENT
     Dosage: SEE IMAGE
     Route: 058
     Dates: start: 20060101, end: 20060318
  2. BYETTA [Suspect]
     Indication: DIABETES MELLITUS NON-INSULIN-DEPENDENT
     Dosage: SEE IMAGE
     Route: 058
     Dates: start: 20060619
  3. GLUCOPHAGE [Concomitant]
  4. ACTOS [Concomitant]

REACTIONS (9)
  - DEHYDRATION [None]
  - DROOLING [None]
  - NAUSEA [None]
  - ORAL CANDIDIASIS [None]
  - ORAL INTAKE REDUCED [None]
  - RHINORRHOEA [None]
  - SNEEZING [None]
  - VOMITING [None]
  - WEIGHT DECREASED [None]
